FAERS Safety Report 10732699 (Version 1)
Quarter: 2015Q1

REPORT INFORMATION
  Report Type: Spontaneous
  Country: US (occurrence: None)
  Receive Date: 20150120
  Receipt Date: 20150120
  Transmission Date: 20150721
  Serious: Yes (Hospitalization)
  Sender: FDA-Public Use
  Company Number: US-20150001

PATIENT
  Age: 29 Year
  Sex: Female
  Weight: 63.5 kg

DRUGS (1)
  1. DOTAREM [Suspect]
     Active Substance: GADOTERATE MEGLUMINE
     Indication: NUCLEAR MAGNETIC RESONANCE IMAGING
     Route: 042
     Dates: start: 20141229, end: 20141229

REACTIONS (5)
  - Tremor [None]
  - Urticaria [None]
  - Erythema [None]
  - Swelling face [None]
  - Dyspnoea [None]

NARRATIVE: CASE EVENT DATE: 20141229
